FAERS Safety Report 21833163 (Version 1)
Quarter: 2023Q1

REPORT INFORMATION
  Report Type: Spontaneous
  Country: US (occurrence: US)
  Receive Date: 20230106
  Receipt Date: 20230106
  Transmission Date: 20230418
  Serious: Yes (Hospitalization)
  Sender: FDA-Public Use
  Company Number: US-UNITED THERAPEUTICS-UNT-2022-031137

PATIENT
  Sex: Female
  Weight: 89.796 kg

DRUGS (6)
  1. REMODULIN [Suspect]
     Active Substance: TREPROSTINIL
     Indication: Pulmonary arterial hypertension
     Dosage: 0.018 ?G/KG (PHARMACY FILLED PRE-FILLED WITH 3 ML/CASSETTE AT A RATE OF 52 MCL/HOUR), CONTINUING
     Route: 058
     Dates: start: 2022
  2. REMODULIN [Suspect]
     Active Substance: TREPROSTINIL
     Dosage: 0.014 ?G/KG (PHARMACY FILLED PRE-FILLED WITH 3 ML/CASSETTE AT A PUMP RATE OF 40 MCL/HOUR), CONTINUIN
     Route: 058
     Dates: start: 2022
  3. REMODULIN [Suspect]
     Active Substance: TREPROSTINIL
     Dosage: UNK, CONTINUING
     Route: 058
     Dates: start: 20221102
  4. SILDENAFIL [Concomitant]
     Active Substance: SILDENAFIL
     Indication: Product used for unknown indication
     Dosage: UNK
     Route: 065
  5. ELIQUIS [Concomitant]
     Active Substance: APIXABAN
     Indication: Product used for unknown indication
     Dosage: UNK
     Route: 065
  6. ADEMPAS [Concomitant]
     Active Substance: RIOCIGUAT
     Indication: Product used for unknown indication
     Dosage: UNK
     Route: 065

REACTIONS (9)
  - Localised oedema [Unknown]
  - Device malfunction [Unknown]
  - Device malfunction [Unknown]
  - Device alarm issue [Unknown]
  - Device power source issue [Unknown]
  - Device wireless communication issue [Unknown]
  - Device alarm issue [Recovered/Resolved]
  - Device malfunction [Recovered/Resolved]
  - Device failure [Recovered/Resolved]

NARRATIVE: CASE EVENT DATE: 20220101
